FAERS Safety Report 12801797 (Version 1)
Quarter: 2016Q4

REPORT INFORMATION
  Report Type: Spontaneous
  Country: US (occurrence: US)
  Receive Date: 20161003
  Receipt Date: 20161003
  Transmission Date: 20170207
  Serious: No
  Sender: FDA-Public Use
  Company Number: US-ASTRAZENECA-2016SF01661

PATIENT
  Age: 23802 Day
  Sex: Female
  Weight: 78.9 kg

DRUGS (6)
  1. HUMULIN NOS [Concomitant]
     Active Substance: INSULIN HUMAN
     Dosage: 40
  2. DRAMAMINE OTC [Concomitant]
  3. METFORMIN [Concomitant]
     Active Substance: METFORMIN HYDROCHLORIDE
  4. GINGER ALE [Concomitant]
  5. BYDUREON [Suspect]
     Active Substance: EXENATIDE
     Indication: TYPE 2 DIABETES MELLITUS
     Route: 058
     Dates: start: 20160911
  6. LISINOPRIL AND HYDROCHLOROTHIAZIDE [Suspect]
     Active Substance: HYDROCHLOROTHIAZIDE\LISINOPRIL
     Indication: HYPERTENSION
     Dosage: 20MG/12.5MG TWICE A DAY
     Route: 048
     Dates: start: 2010

REACTIONS (7)
  - Nausea [Recovering/Resolving]
  - Eructation [Unknown]
  - Head discomfort [Unknown]
  - Dyskinesia [Unknown]
  - Vomiting [Recovering/Resolving]
  - Abdominal discomfort [Unknown]
  - Glycosylated haemoglobin increased [Unknown]

NARRATIVE: CASE EVENT DATE: 20160911
